FAERS Safety Report 5190368-3 (Version None)
Quarter: 2006Q4

REPORT INFORMATION
  Report Type: 
  Country: None (occurrence: None)
  Receive Date: 20061222
  Receipt Date: 20060922
  Transmission Date: 20070319
  Serious: Yes (Other)
  Sender: FDA-Public Use
  Company Number: US-BAYER-200615696BWH

PATIENT
  Sex: Female

DRUGS (3)
  1. CIPRO IV [Suspect]
     Indication: DRUG USE FOR UNKNOWN INDICATION
  2. DEXTROSE 5% [Suspect]
  3. NORMAL SALINE INJECTION [Suspect]

REACTIONS (1)
  - MYOFASCIAL PAIN SYNDROME [None]
